FAERS Safety Report 18164892 (Version 2)
Quarter: 2022Q4

REPORT INFORMATION
  Report Type: Spontaneous
  Country: DE (occurrence: DE)
  Receive Date: 20200818
  Receipt Date: 20221212
  Transmission Date: 20230113
  Serious: Yes (Hospitalization)
  Sender: FDA-Public Use
  Company Number: DE-ADRED-05218-01

PATIENT
  Age: 75 Year
  Sex: Male

DRUGS (15)
  1. TORSEMIDE [Suspect]
     Active Substance: TORSEMIDE
     Dosage: 10 MILLIGRAM (10 MG, 1-0-0-0, TABLET)
     Route: 048
  2. CLOPIDOGREL [Suspect]
     Active Substance: CLOPIDOGREL BISULFATE
     Indication: Product used for unknown indication
     Dosage: 75 MILLIGRAM, 0-0-1-0
     Route: 048
  3. ASPIRIN [Suspect]
     Active Substance: ASPIRIN
     Indication: Product used for unknown indication
     Dosage: 100 MILLIGRAM (0-1-0-0, TABLETTEN)
     Route: 048
  4. APIXABAN [Suspect]
     Active Substance: APIXABAN
     Indication: Product used for unknown indication
     Dosage: 2.5 MILLIGRAM ,1-0-1-0, TABLET
     Route: 048
  5. JANUMET [Suspect]
     Active Substance: METFORMIN HYDROCHLORIDE\SITAGLIPTIN PHOSPHATE
     Indication: Product used for unknown indication
     Dosage: 1000|50 MG, 1-0-1-0, TABLETTEN
     Route: 048
  6. MIRTAZAPINE [Concomitant]
     Active Substance: MIRTAZAPINE
     Dosage: 15 MILLIGRAM (15 MG, 0-0-1-0, TABLETTEN)
     Route: 048
  7. MOVICOL [Concomitant]
     Active Substance: POLYETHYLENE GLYCOL 3350\POTASSIUM CHLORIDE\SODIUM BICARBONATE\SODIUM CHLORIDE
     Dosage: NK MG, 1-0-0-0
     Route: 048
  8. ATORVASTATIN [Concomitant]
     Active Substance: ATORVASTATIN
     Dosage: 20 MILLIGRAM,  0-0-1-0
     Route: 048
  9. CHOLECALCIFEROL [Concomitant]
     Active Substance: CHOLECALCIFEROL
     Dosage: 20.000 IE / WEEK, 1X, CAPSULE
     Route: 048
  10. TAMSULOSIN [Concomitant]
     Active Substance: TAMSULOSIN
     Dosage: 0.4 MILLIGRAM, 0-1-0-0, TABLET
     Route: 048
  11. FENOTEROL HYDROBROMIDE\IPRATROPIUM BROMIDE [Concomitant]
     Active Substance: FENOTEROL HYDROBROMIDE\IPRATROPIUM BROMIDE
     Dosage: NK MG, 2X, DOSIERAEROSOL
     Route: 055
  12. PANTOPRAZOLE SODIUM [Concomitant]
     Active Substance: PANTOPRAZOLE SODIUM
     Dosage: 40 MILLIGRAM, 1-0-0-0
     Route: 048
  13. METAMIZOL [Concomitant]
     Active Substance: METAMIZOLE SODIUM
     Dosage: NK MG, 3X, DROP
     Route: 048
  14. NALOXONE HYDROCHLORIDE\TILIDINE HYDROCHLORIDE [Concomitant]
     Active Substance: NALOXONE HYDROCHLORIDE\TILIDINE HYDROCHLORIDE
     Dosage: 4|50 MG, 1-0-1-0, TABLETTEN
     Route: 048
  15. SPIRIVA RESPIMAT [Concomitant]
     Active Substance: TIOTROPIUM BROMIDE
     Dosage: 2.5 MILLIGRAM, 2-0-0-0
     Route: 055

REACTIONS (5)
  - Musculoskeletal pain [Unknown]
  - Pain in extremity [Unknown]
  - Haemorrhage [Unknown]
  - Pain [Unknown]
  - Atheroembolism [Unknown]
